FAERS Safety Report 12657618 (Version 2)
Quarter: 2016Q3

REPORT INFORMATION
  Report Type: Report from Study
  Country: US (occurrence: US)
  Receive Date: 20160816
  Receipt Date: 20160822
  Transmission Date: 20161109
  Serious: Yes (Other)
  Sender: FDA-Public Use
  Company Number: US-ASTRAZENECA-2016SE87149

PATIENT
  Age: 796 Month
  Sex: Female
  Weight: 98 kg

DRUGS (11)
  1. INSULIN PUMP NOVOLOG 100 [Concomitant]
     Indication: DIABETES MELLITUS
     Route: 058
  2. AMLODIPINE [Concomitant]
     Active Substance: AMLODIPINE BESYLATE
     Indication: HYPERTENSION
     Route: 048
  3. CARVEDILOL. [Concomitant]
     Active Substance: CARVEDILOL
     Dosage: 6.25MG UNKNOWN
     Route: 048
  4. ANASTRAZOLE [Suspect]
     Active Substance: ANASTROZOLE
     Indication: BREAST CANCER
     Route: 048
  5. CLOPIDOGREL [Concomitant]
     Active Substance: CLOPIDOGREL BISULFATE
     Indication: ANTICOAGULANT THERAPY
     Route: 048
  6. IRON [Concomitant]
     Active Substance: IRON
     Indication: ANAEMIA
     Dosage: DAILY
     Route: 048
     Dates: start: 2015
  7. OMEPROZOLE [Suspect]
     Active Substance: OMEPRAZOLE
     Dosage: THREE TIMES A WEEK
     Route: 048
  8. A TO Z MULTIVITAMIN DAILY [Concomitant]
     Indication: SUPPLEMENTATION THERAPY
     Dosage: DAILY
     Route: 048
  9. SIMVASTATIN. [Concomitant]
     Active Substance: SIMVASTATIN
     Indication: BLOOD CHOLESTEROL INCREASED
     Dosage: UNKNOWN
     Route: 065
  10. CRESTOR [Suspect]
     Active Substance: ROSUVASTATIN CALCIUM
     Indication: BLOOD CHOLESTEROL INCREASED
     Route: 048
     Dates: start: 201401
  11. LOSARTAN POTASSIUM. [Concomitant]
     Active Substance: LOSARTAN POTASSIUM
     Indication: HYPERTENSION
     Route: 048

REACTIONS (10)
  - Chronic kidney disease [Unknown]
  - Road traffic accident [Unknown]
  - Breast cancer [Unknown]
  - Transient ischaemic attack [Unknown]
  - Weight decreased [Unknown]
  - Blood cholesterol increased [Unknown]
  - Loss of consciousness [Unknown]
  - Iron deficiency anaemia [Unknown]
  - Musculoskeletal stiffness [Unknown]
  - Hypertension [Unknown]

NARRATIVE: CASE EVENT DATE: 201009
